FAERS Safety Report 7710846-X (Version None)
Quarter: 2011Q3

REPORT INFORMATION
  Report Type: 
  Country: None (occurrence: None)
  Receive Date: 20110825
  Receipt Date: 20110812
  Transmission Date: 20111222
  Serious: Yes (Hospitalization)
  Sender: FDA-Public Use
  Company Number: NL-GENENTECH-321279

PATIENT
  Sex: Female
  Weight: 83 kg

DRUGS (13)
  1. VINCRISTINE [Suspect]
     Indication: DIFFUSE LARGE B-CELL LYMPHOMA
     Dosage: 2 MG, UNK
     Route: 042
     Dates: start: 20100419
  2. CLOMIPRAMINE [Concomitant]
     Indication: DEPRESSION
     Dosage: 25 MG, QAM
     Route: 048
  3. AMLODIPINE [Concomitant]
     Indication: ANGINA PECTORIS
     Dosage: 5 MG, QD
     Dates: end: 20100428
  4. CYCLOPHOSPHAMIDE [Suspect]
     Indication: DIFFUSE LARGE B-CELL LYMPHOMA
     Dosage: 1500 MG, UNK
     Route: 042
     Dates: start: 20100419
  5. METOPROLOL [Concomitant]
     Indication: ANGINA PECTORIS
     Dosage: 100 MG, QAM
     Route: 048
  6. RITUXIMAB [Suspect]
     Indication: DIFFUSE LARGE B-CELL LYMPHOMA
     Dosage: 750 MG, UNK
     Route: 042
     Dates: start: 20100419
  7. PREDNISONE [Suspect]
     Indication: DIFFUSE LARGE B-CELL LYMPHOMA
     Dosage: 100 MG, UNK
     Route: 048
     Dates: start: 20100419
  8. TOLBUTAMIDE [Concomitant]
     Indication: DIABETES MELLITUS
     Dosage: 500 MG, TID
     Route: 048
     Dates: start: 20060101
  9. DOXORUBICIN HCL [Suspect]
     Indication: DIFFUSE LARGE B-CELL LYMPHOMA
     Dosage: 100 MG, UNK
     Route: 042
     Dates: start: 20110419
  10. LISINOPRIL [Concomitant]
     Indication: MYOCARDIAL INFARCTION
     Dosage: 10 MG, QD
     Route: 048
  11. ASCAL [Concomitant]
     Indication: THROMBOSIS
     Dosage: 100 MG, QD
     Route: 048
  12. NEUPOGEN [Suspect]
     Indication: DIFFUSE LARGE B-CELL LYMPHOMA
     Dosage: 6 MG, UNK
     Route: 058
     Dates: start: 20110420
  13. SIMVASTATIN [Concomitant]
     Indication: PRODUCT USED FOR UNKNOWN INDICATION
     Dosage: 20 MG, QAM
     Route: 048

REACTIONS (1)
  - DEEP VEIN THROMBOSIS [None]
